FAERS Safety Report 6535252-5 (Version None)
Quarter: 2010Q1

REPORT INFORMATION
  Report Type: 
  Country: None (occurrence: None)
  Receive Date: 20100113
  Receipt Date: 20100105
  Transmission Date: 20100710
  Serious: Yes (Death, Other)
  Sender: FDA-Public Use
  Company Number: CA-ELI_LILLY_AND_COMPANY-CA201001000725

PATIENT
  Age: 66 Year
  Sex: Female

DRUGS (12)
  1. FORTEO [Suspect]
     Indication: OSTEOPOROSIS
     Dosage: 20 UG, DAILY (1/D)
     Route: 058
     Dates: start: 20090107
  2. OXYCONTIN [Concomitant]
  3. PERCOCET [Concomitant]
  4. CALCIUM [Concomitant]
  5. VITAMIN D [Concomitant]
  6. POTASSIUM [Concomitant]
  7. PMS-METOPROLOL [Concomitant]
  8. AVALIDE [Concomitant]
  9. NORVASC [Concomitant]
  10. ASPIRIN [Concomitant]
  11. EZETROL [Concomitant]
  12. LIPITOR [Concomitant]

REACTIONS (1)
  - DEATH [None]
